FAERS Safety Report 10205627 (Version 2)
Quarter: 2014Q3

REPORT INFORMATION
  Report Type: Spontaneous
  Country: US (occurrence: US)
  Receive Date: 20140529
  Receipt Date: 20140822
  Transmission Date: 20150326
  Serious: No
  Sender: FDA-Public Use
  Company Number: US-009507513-1405USA015050

PATIENT
  Sex: Male
  Weight: 63.49 kg

DRUGS (2)
  1. MIRALAX [Suspect]
     Active Substance: POLYETHYLENE GLYCOL 3350
     Indication: BOWEL MOVEMENT IRREGULARITY
     Dosage: 11.33 G, QD
     Route: 048
     Dates: start: 2008
  2. VITAMIN D [Concomitant]
     Active Substance: CHOLECALCIFEROL
     Indication: VITAMIN D DEFICIENCY
     Dosage: UNK, UNKNOWN

REACTIONS (4)
  - Drug administered to patient of inappropriate age [Unknown]
  - Product solubility abnormal [Unknown]
  - Off label use [Unknown]
  - Incorrect drug administration duration [Unknown]
